FAERS Safety Report 4855922-4 (Version None)
Quarter: 2005Q4

REPORT INFORMATION
  Report Type: 
  Country: None (occurrence: None)
  Receive Date: 20051216
  Receipt Date: 20051202
  Transmission Date: 20060501
  Serious: Yes (Other)
  Sender: FDA-Public Use
  Company Number: AU-GLAXOSMITHKLINE-B0402671A

PATIENT
  Age: 31 Year
  Sex: Female

DRUGS (1)
  1. ZYBAN [Suspect]
     Dosage: 150MG SEE DOSAGE TEXT
     Dates: start: 20051112, end: 20051130

REACTIONS (14)
  - ARTHRALGIA [None]
  - DRUG HYPERSENSITIVITY [None]
  - DYSPHONIA [None]
  - ERYTHEMA MULTIFORME [None]
  - EYE SWELLING [None]
  - JOINT SWELLING [None]
  - OEDEMA PERIPHERAL [None]
  - PHARYNGEAL OEDEMA [None]
  - PRURITUS [None]
  - RASH [None]
  - RASH MACULAR [None]
  - RHINORRHOEA [None]
  - SWELLING FACE [None]
  - URTICARIA [None]
